FAERS Safety Report 25040669 (Version 1)
Quarter: 2025Q1

REPORT INFORMATION
  Report Type: Spontaneous
  Country: US (occurrence: None)
  Receive Date: 20250304
  Receipt Date: 20250304
  Transmission Date: 20250409
  Serious: Yes (Other)
  Sender: FDA-CTU
  Company Number: None

PATIENT
  Age: 38 Year
  Sex: Female

DRUGS (11)
  1. RINVOQ [Suspect]
     Active Substance: UPADACITINIB
     Indication: Colitis ulcerative
     Dosage: FREQUENCY : DAILY;?
     Route: 048
     Dates: start: 20250128, end: 20250220
  2. CALCIUM +D 1200MG SOFT GEL [Concomitant]
  3. COLESEVELAM 625MG TABS [Concomitant]
  4. CYCOBENZAPRINE 10MG TABS [Concomitant]
  5. FAMOTIDINE 20MG TABS [Concomitant]
  6. FLUOXETINE 10MG CAPS [Concomitant]
  7. FOLIC ACID 1MG TABS [Concomitant]
  8. FOSAMAX 35MG TABS [Concomitant]
  9. LEVOCETIRIZINE 5MG TABS [Concomitant]
  10. TOPIRAMATE 100MG TABS [Concomitant]
  11. VITAMIN D 1000IU CAPS [Concomitant]

REACTIONS (4)
  - Influenza like illness [None]
  - Autoimmune disorder [None]
  - Drug interaction [None]
  - Blister [None]

NARRATIVE: CASE EVENT DATE: 20250215
